FAERS Safety Report 25998945 (Version 1)
Quarter: 2025Q4

REPORT INFORMATION
  Report Type: Report from Study
  Country: US (occurrence: US)
  Receive Date: 20251105
  Receipt Date: 20251105
  Transmission Date: 20260117
  Serious: Yes (Other)
  Sender: ABBVIE
  Company Number: US-ABBVIE-6525147

PATIENT
  Age: 39 Year
  Sex: Male

DRUGS (1)
  1. SKYRIZI [Suspect]
     Active Substance: RISANKIZUMAB-RZAA
     Indication: Crohn^s disease
     Route: 058
     Dates: start: 20250414

REACTIONS (5)
  - Colectomy [Recovered/Resolved]
  - Injection site papule [Not Recovered/Not Resolved]
  - Labral reconstruction [Recovering/Resolving]
  - Injection site pain [Unknown]
  - Exostosis [Recovering/Resolving]

NARRATIVE: CASE EVENT DATE: 20250101
